FAERS Safety Report 7595356-5 (Version None)
Quarter: 2011Q3

REPORT INFORMATION
  Report Type: 
  Country: None (occurrence: None)
  Receive Date: 20110707
  Receipt Date: 20110630
  Transmission Date: 20111222
  Serious: Yes (Other)
  Sender: FDA-Public Use
  Company Number: FR-PFIZER INC-2011146367

PATIENT
  Age: 58 Year
  Sex: Male

DRUGS (1)
  1. TORISEL [Suspect]
     Indication: RENAL CANCER
     Dosage: 25 MG, WEEKLY
     Route: 042

REACTIONS (3)
  - GOUT [None]
  - GENITAL ULCERATION [None]
  - MUCOSAL INFLAMMATION [None]
